FAERS Safety Report 4898484-8 (Version None)
Quarter: 2006Q1

REPORT INFORMATION
  Report Type: 
  Country: None (occurrence: None)
  Receive Date: 20060131
  Receipt Date: 20060131
  Transmission Date: 20060701
  Serious: Yes (Hospitalization, Other)
  Sender: FDA-Public Use
  Company Number: None

PATIENT
  Sex: Female
  Weight: 122.3 kg

DRUGS (4)
  1. CARBOPLATIN [Suspect]
     Indication: ENDOMETRIAL CANCER
     Dosage: 531 MG
     Dates: start: 20060123, end: 20060123
  2. TAXOL [Suspect]
     Dosage: 350 MG
     Dates: start: 20060123, end: 20060123
  3. COUMADIN [Concomitant]
  4. MAXZIDE [Concomitant]

REACTIONS (2)
  - ATRIAL FIBRILLATION [None]
  - DYSPNOEA [None]
